FAERS Safety Report 10192220 (Version 1)
Quarter: 2014Q2

REPORT INFORMATION
  Report Type: Spontaneous
  Country: US (occurrence: US)
  Receive Date: 20140523
  Receipt Date: 20140523
  Transmission Date: 20141212
  Serious: No
  Sender: FDA-Public Use
  Company Number: US-AMARIN PHARMA, INC.-2014AMR000015

PATIENT
  Sex: Female
  Weight: 95.34 kg

DRUGS (1)
  1. VASCEPA [Suspect]
     Indication: BLOOD CHOLESTEROL ABNORMAL
     Route: 048
     Dates: start: 2013, end: 20140121

REACTIONS (1)
  - Muscle spasms [Recovered/Resolved]
